FAERS Safety Report 7576432-X (Version None)
Quarter: 2011Q2

REPORT INFORMATION
  Report Type: 
  Country: None (occurrence: None)
  Receive Date: 20110628
  Receipt Date: 20110118
  Transmission Date: 20111010
  Serious: Yes (Other)
  Sender: FDA-Public Use
  Company Number: US-BAYER-2011-008455

PATIENT
  Age: 69 Year
  Sex: Female
  Weight: 90.703 kg

DRUGS (28)
  1. TRASYLOL [Suspect]
     Indication: AORTIC VALVE REPLACEMENT
  2. COREG [Concomitant]
     Dosage: 6.25 MG, UNK
     Dates: start: 20050101
  3. INSULIN [Concomitant]
     Dosage: UNK
     Dates: start: 20030101
  4. METFORMIN HCL [Concomitant]
     Dosage: 500 MG, UNK
     Dates: start: 20040101
  5. LEXAPRO [Concomitant]
     Dosage: 10 MG, UNK
     Dates: start: 20060509
  6. DOXAZOSIN MESYLATE [Concomitant]
     Dosage: 8 MG, UNK
     Dates: start: 20060729
  7. DIOVAN [Concomitant]
     Dosage: 160 MG, UNK
     Dates: start: 20061103
  8. HYDRALAZINE HCL [Concomitant]
     Indication: PRODUCT USED FOR UNKNOWN INDICATION
     Dosage: 20 MG, UNK
     Route: 042
     Dates: start: 20060307
  9. CLONIDINE [Concomitant]
     Dosage: 0.1 MG, UNK
     Dates: start: 20030101
  10. MAVIK [Concomitant]
     Dosage: 2 MG, UNK
     Dates: start: 20060101
  11. ZAROXOLYN [Concomitant]
     Dosage: 2.5 MG, UNK
     Dates: start: 20060509
  12. ZOCOR [Concomitant]
     Dosage: 20 MG, UNK
     Dates: start: 20040101
  13. MICARDIS HCT [Concomitant]
     Dosage: 80/12.5 MG
     Dates: start: 20050101
  14. LEVAQUIN [Concomitant]
     Indication: PRODUCT USED FOR UNKNOWN INDICATION
     Dosage: 500 MG, QD
     Dates: start: 20060307
  15. PNEUMOTUSSIN [Concomitant]
     Dosage: UNK
     Dates: start: 20061124
  16. MORPHINE [Concomitant]
     Indication: PRODUCT USED FOR UNKNOWN INDICATION
     Dosage: UNK
     Route: 042
     Dates: start: 20060307
  17. NAPROXEN [Concomitant]
     Dosage: 500 MG, UNK
     Dates: start: 20040101
  18. LOPRESSOR [Concomitant]
     Indication: PRODUCT USED FOR UNKNOWN INDICATION
     Dosage: 50 MG, BID
     Route: 048
     Dates: start: 20060307
  19. ASPIRIN [Concomitant]
     Dosage: 325 MG, UNK
     Dates: start: 20040101
  20. ENALAPRIL MALEATE [Concomitant]
     Dosage: 20 MG, UNK
     Dates: start: 20040101
  21. ALTACE [Concomitant]
     Dosage: 10 MG, UNK
     Dates: start: 20060509
  22. AMIODARONE HCL [Concomitant]
     Dosage: 200 MG, UNK
     Dates: start: 20060509
  23. TRASYLOL [Suspect]
     Indication: CORONARY ARTERY BYPASS
     Dosage: UNK
     Route: 042
     Dates: start: 20060314, end: 20060314
  24. FUROSEMIDE [Concomitant]
     Dosage: UNK
     Dates: start: 20040619
  25. LISINOPRIL [Concomitant]
     Indication: BLOOD PRESSURE ABNORMAL
     Dosage: UNK
     Dates: start: 20060816
  26. PLAVIX [Concomitant]
     Indication: PRODUCT USED FOR UNKNOWN INDICATION
     Dosage: 325 MG, QD
     Route: 048
     Dates: start: 20060307
  27. HEPARIN [Concomitant]
     Indication: PRODUCT USED FOR UNKNOWN INDICATION
     Dosage: TITRATED
     Route: 042
     Dates: start: 20060307
  28. PROTAMINE SULFATE [Concomitant]

REACTIONS (13)
  - UNEVALUABLE EVENT [None]
  - ANHEDONIA [None]
  - EMOTIONAL DISTRESS [None]
  - RENAL FAILURE [None]
  - FEAR OF DEATH [None]
  - NERVOUSNESS [None]
  - ANXIETY [None]
  - DEPRESSION [None]
  - RENAL INJURY [None]
  - INJURY [None]
  - MULTI-ORGAN FAILURE [None]
  - FEAR [None]
  - PAIN [None]
